FAERS Safety Report 10194760 (Version 1)
Quarter: 2014Q2

REPORT INFORMATION
  Report Type: Spontaneous
  Country: SE (occurrence: SE)
  Receive Date: 20140526
  Receipt Date: 20140526
  Transmission Date: 20141212
  Serious: Yes (Death)
  Sender: FDA-Public Use
  Company Number: SE-JNJFOC-20140512493

PATIENT
  Sex: 0

DRUGS (1)
  1. IBUPROFEN [Suspect]
     Indication: PATENT DUCTUS ARTERIOSUS REPAIR
     Route: 065

REACTIONS (5)
  - Death [Fatal]
  - Off label use [Unknown]
  - Drug administered to patient of inappropriate age [Unknown]
  - Therapeutic response changed [Unknown]
  - Drug ineffective for unapproved indication [Unknown]
